FAERS Safety Report 5308831-0 (Version None)
Quarter: 2007Q2

REPORT INFORMATION
  Report Type: 
  Country: None (occurrence: None)
  Receive Date: 20070426
  Receipt Date: 20070416
  Transmission Date: 20071010
  Serious: Yes (Death)
  Sender: FDA-Public Use
  Company Number: FR-PFIZER INC-2007031122

PATIENT
  Age: 40 Year
  Sex: Male

DRUGS (1)
  1. TAHOR [Suspect]
     Indication: DYSLIPIDAEMIA

REACTIONS (1)
  - CARDIAC ARREST [None]
